FAERS Safety Report 16238918 (Version 7)
Quarter: 2022Q2

REPORT INFORMATION
  Report Type: Report from Study
  Country: PL (occurrence: PL)
  Receive Date: 20190425
  Receipt Date: 20220526
  Transmission Date: 20220721
  Serious: Yes (Life-Threatening, Hospitalization, Disabling)
  Sender: FDA-Public Use
  Company Number: PL-JNJFOC-20190400567

PATIENT
  Age: 63 Year
  Sex: Male
  Weight: 76.7 kg

DRUGS (2)
  1. APALUTAMIDE [Suspect]
     Active Substance: APALUTAMIDE
     Indication: Prostate cancer
     Route: 048
     Dates: start: 20170705, end: 20190327
  2. AMLODIPINE BESYLATE\INDAPAMIDE\PERINDOPRIL ARGININE [Concomitant]
     Active Substance: AMLODIPINE BESYLATE\INDAPAMIDE\PERINDOPRIL ARGININE
     Indication: Hypertension
     Route: 048
     Dates: start: 20180924

REACTIONS (2)
  - Ischaemic stroke [Recovered/Resolved with Sequelae]
  - Post stroke epilepsy [Recovered/Resolved]

NARRATIVE: CASE EVENT DATE: 20190328
